FAERS Safety Report 10285843 (Version 1)
Quarter: 2014Q3

REPORT INFORMATION
  Report Type: Spontaneous
  Country: IT (occurrence: None)
  Receive Date: 20140703
  Receipt Date: 20140703
  Transmission Date: 20150326
  Serious: Yes (Hospitalization)
  Sender: FDA-Public Use
  Company Number: AUR-APL-2014-06842

PATIENT
  Age: 79 Year
  Sex: Male

DRUGS (2)
  1. SIMVASTATIN. [Suspect]
     Active Substance: SIMVASTATIN
     Indication: CARDIOVASCULAR EVENT PROPHYLAXIS
     Route: 048
     Dates: start: 20130901, end: 20140321
  2. CARDIRENE (ACETYLSALICYLATE LYSINE) [Concomitant]

REACTIONS (3)
  - Blood chloride decreased [None]
  - Blood sodium decreased [None]
  - Rhabdomyolysis [None]

NARRATIVE: CASE EVENT DATE: 20140331
